FAERS Safety Report 10874080 (Version 2)
Quarter: 2015Q1

REPORT INFORMATION
  Report Type: Spontaneous
  Country: US (occurrence: None)
  Receive Date: 20150224
  Receipt Date: 20150323
  Transmission Date: 20150721
  Serious: No
  Sender: FDA-Public Use
  Company Number: 2015-00022

PATIENT
  Age: 69 Year
  Sex: Male
  Weight: 117.94 kg

DRUGS (7)
  1. IRBESARTAN. [Concomitant]
     Active Substance: IRBESARTAN
  2. HYDROCHLOROTHIAZIDE (HCTZ) [Concomitant]
     Active Substance: HYDROCHLOROTHIAZIDE
  3. ZICAM COLD REMEDY [Suspect]
     Active Substance: ZINC ACETATE\ZINC GLUCONATE
     Indication: NASOPHARYNGITIS
     Dosage: 4 SPRAYS ORALLY ONCE
     Route: 048
     Dates: start: 20150214
  4. ASPIRIN. [Concomitant]
     Active Substance: ASPIRIN
  5. FIBER [Concomitant]
     Active Substance: PSYLLIUM HUSK
  6. ZICAM COLD REMEDY [Suspect]
     Active Substance: ZINC ACETATE\ZINC GLUCONATE
     Indication: PROPHYLAXIS
     Dosage: 4 SPRAYS ORALLY ONCE
     Route: 048
     Dates: start: 20150214
  7. POTASSIUM SUPPLEMENT [Concomitant]

REACTIONS (3)
  - Similar reaction on previous exposure to drug [None]
  - Stomatitis [None]
  - Ageusia [None]

NARRATIVE: CASE EVENT DATE: 20150214
